FAERS Safety Report 4376157-8 (Version None)
Quarter: 2004Q2

REPORT INFORMATION
  Report Type: 
  Country: None (occurrence: None)
  Receive Date: 20040611
  Receipt Date: 20040427
  Transmission Date: 20050107
  Serious: Yes (Hospitalization)
  Sender: FDA-Public Use
  Company Number: JP-BRISTOL-MYERS SQUIBB COMPANY-12572558

PATIENT
  Age: 49 Year
  Sex: Female

DRUGS (7)
  1. TAXOL [Suspect]
     Indication: OVARIAN CANCER
     Dosage: NEXT THERAPY DATE: 24MAY04
     Route: 042
     Dates: start: 20040405, end: 20040405
  2. PARAPLATIN [Suspect]
     Indication: OVARIAN CANCER
     Dosage: NEXT DOSE 24MAY04
     Route: 042
     Dates: start: 20040405, end: 20040405
  3. ZANTAC [Suspect]
     Indication: PREMEDICATION
     Route: 042
     Dates: start: 20040405, end: 20040524
  4. KYTRIL [Concomitant]
     Route: 048
     Dates: start: 20040405, end: 20040524
  5. KYTRIL [Concomitant]
     Route: 042
     Dates: start: 20040405, end: 20040524
  6. DECADRON [Concomitant]
     Route: 042
     Dates: start: 20040405, end: 20040524
  7. RESTAMIN [Concomitant]
     Route: 048
     Dates: start: 20040405, end: 20040524

REACTIONS (1)
  - PSORIASIS [None]
